FAERS Safety Report 8094060-7 (Version None)
Quarter: 2012Q1

REPORT INFORMATION
  Report Type: 
  Country: None (occurrence: None)
  Receive Date: 20120131
  Receipt Date: 20120127
  Transmission Date: 20120608
  Serious: Yes (Other)
  Sender: FDA-Public Use
  Company Number: PHHY2012HU007184

PATIENT
  Age: 61 Year
  Sex: Female

DRUGS (1)
  1. EXJADE [Suspect]
     Indication: HAEMOSIDEROSIS
     Dosage: 1000 MG, DAILY
     Route: 048
     Dates: start: 20111208, end: 20111221

REACTIONS (2)
  - RASH MACULO-PAPULAR [None]
  - CIRCULATORY COLLAPSE [None]
